FAERS Safety Report 20640628 (Version 5)
Quarter: 2022Q3

REPORT INFORMATION
  Report Type: Spontaneous
  Country: US (occurrence: US)
  Receive Date: 20220327
  Receipt Date: 20220804
  Transmission Date: 20221026
  Serious: Yes (Other)
  Sender: FDA-Public Use
  Company Number: US-SA-SAC20220321001262

PATIENT
  Age: 66 Year
  Sex: Female

DRUGS (10)
  1. AUBAGIO [Suspect]
     Active Substance: TERIFLUNOMIDE
     Indication: Multiple sclerosis
     Dosage: 14 MG, QD
     Route: 048
  2. AUBAGIO [Suspect]
     Active Substance: TERIFLUNOMIDE
     Indication: Iron deficiency anaemia
  3. HYDROCHLOROTHIAZIDE\VALSARTAN [Concomitant]
     Active Substance: HYDROCHLOROTHIAZIDE\VALSARTAN
  4. LOSARTAN POTASSIUM [Concomitant]
     Active Substance: LOSARTAN POTASSIUM
  5. TAMSULOSIN HYDROCHLORIDE [Concomitant]
     Active Substance: TAMSULOSIN HYDROCHLORIDE
  6. HYDROCODONE [Concomitant]
     Active Substance: HYDROCODONE
     Dosage: HYDROCODONE- TAB 2.5-325M
  7. FLUTICASONE [Concomitant]
     Active Substance: FLUTICASONE
  8. AZITHROMYCIN [Concomitant]
     Active Substance: AZITHROMYCIN
  9. AMLODIPINE BESYLATE [Concomitant]
     Active Substance: AMLODIPINE BESYLATE
  10. LUMIGAN [Concomitant]
     Active Substance: BIMATOPROST

REACTIONS (6)
  - Multiple sclerosis relapse [Recovering/Resolving]
  - General physical health deterioration [Recovering/Resolving]
  - Memory impairment [Not Recovered/Not Resolved]
  - Decreased appetite [Recovering/Resolving]
  - Product dose omission issue [Unknown]
  - Product use in unapproved indication [Unknown]

NARRATIVE: CASE EVENT DATE: 20220626
